FAERS Safety Report 5802660-7 (Version None)
Quarter: 2008Q3

REPORT INFORMATION
  Report Type: 
  Country: None (occurrence: None)
  Receive Date: 20080708
  Receipt Date: 20080626
  Transmission Date: 20090109
  Serious: Yes (Other)
  Sender: FDA-Public Use
  Company Number: DE-BRISTOL-MYERS SQUIBB COMPANY-14249312

PATIENT
  Age: 60 Year
  Sex: Female
  Weight: 78 kg

DRUGS (7)
  1. ERBITUX [Suspect]
     Indication: COLORECTAL CANCER METASTATIC
     Dosage: STARTING DOSE 400MG/M2; 19APR-19JUL; 250MG/M2: 26APR-19JUL;06SEP-04OCT;18-25OCT07 IVDRIP,1 IN 1 WK
     Route: 041
     Dates: start: 20070906, end: 20071004
  2. OXALIPLATIN [Suspect]
     Indication: COLORECTAL CANCER METASTATIC
     Dates: start: 20070419
  3. FLUOROURACIL [Suspect]
     Indication: COLORECTAL CANCER METASTATIC
     Dates: start: 20070419
  4. CALCIUM FOLINATE [Suspect]
     Indication: COLORECTAL CANCER METASTATIC
     Dates: start: 20070419
  5. ONDANSETRON [Concomitant]
     Indication: PREMEDICATION
     Dosage: 30 MIN PRIOR TO ERBITUX
     Dates: start: 20070419
  6. DEXAMETHASONE [Concomitant]
     Indication: PREMEDICATION
     Dosage: 30 MIN PRIOR TO ERBITUX
     Dates: start: 20070419
  7. ANTIHISTAMINE NOS [Concomitant]
     Indication: PREMEDICATION

REACTIONS (4)
  - CONJUNCTIVITIS [None]
  - EYE INFLAMMATION [None]
  - NAIL DISORDER [None]
  - NAIL INFECTION [None]
